FAERS Safety Report 18610765 (Version 1)
Quarter: 2020Q4

REPORT INFORMATION
  Report Type: Spontaneous
  Country: US (occurrence: US)
  Receive Date: 20201214
  Receipt Date: 20201214
  Transmission Date: 20210114
  Serious: Yes (Other)
  Sender: FDA-Public Use
  Company Number: US-PFIZER INC-2020490324

PATIENT
  Age: 69 Year
  Sex: Male

DRUGS (1)
  1. RAPAMUNE [Suspect]
     Active Substance: SIROLIMUS
     Dosage: 3 MG, 1X/DAY; (RAPAMUNE 1MG - TAKE 3MG BY MOUTH ONCE A DAY)
     Route: 048

REACTIONS (2)
  - Blindness [Unknown]
  - Diabetes mellitus [Unknown]
